FAERS Safety Report 19263955 (Version 1)
Quarter: 2021Q2

REPORT INFORMATION
  Report Type: Spontaneous
  Country: US (occurrence: US)
  Receive Date: 20210515
  Receipt Date: 20210515
  Transmission Date: 20210717
  Serious: Yes (Other)
  Sender: FDA-Public Use
  Company Number: None

PATIENT
  Age: 63 Year
  Sex: Male
  Weight: 96.75 kg

DRUGS (5)
  1. AMLODIPINE 7.5 MG [Concomitant]
  2. VITAMIN B COMPLEX [Concomitant]
     Active Substance: CYANOCOBALAMIN\DEXPANTHENOL\NIACINAMIDE\PYRIDOXINE HYDROCHLORIDE\RIBOFLAVIN 5^-PHOSPHATE SODIUM\THIAMINE HYDROCHLORIDE\VITAMIN B COMPLEX
  3. BUPRENORPHINE AND NALOXONE SUBLINGUAL FILM 4MG/1MG [Suspect]
     Active Substance: BUPRENORPHINE HYDROCHLORIDE\NALOXONE HYDROCHLORIDE
     Indication: DRUG DEPENDENCE
     Dosage: ?          QUANTITY:30 SUBLINGUAL FILMS;?
     Route: 060
  4. MULTI VIT [Concomitant]
     Active Substance: VITAMINS
  5. BUPRENORPHINE AND NALOXONE SUBLINGUAL FILM 4MG/1MG [Suspect]
     Active Substance: BUPRENORPHINE HYDROCHLORIDE\NALOXONE HYDROCHLORIDE
     Indication: PAIN
     Dosage: ?          QUANTITY:30 SUBLINGUAL FILMS;?
     Route: 060

REACTIONS (6)
  - Drug ineffective [None]
  - Headache [None]
  - Therapeutic response shortened [None]
  - Pain in jaw [None]
  - Arthralgia [None]
  - Drug dependence [None]

NARRATIVE: CASE EVENT DATE: 20210101
